FAERS Safety Report 19108691 (Version 1)
Quarter: 2021Q2

REPORT INFORMATION
  Report Type: Report from Study
  Country: BR (occurrence: BR)
  Receive Date: 20210408
  Receipt Date: 20210408
  Transmission Date: 20210717
  Serious: Yes (Other)
  Sender: FDA-Public Use
  Company Number: BR-TAKEDA-BR202034234

PATIENT
  Age: 26 Year
  Sex: Male
  Weight: 72 kg

DRUGS (9)
  1. PHENOBARBITAL. [Concomitant]
     Active Substance: PHENOBARBITAL
     Indication: EPILEPSY
     Dosage: 1.5 DOSAGE FORM, BID
     Route: 065
  2. ADVATE [Suspect]
     Active Substance: ANTIHEMOPHILIC FACTOR, HUMAN RECOMBINANT
     Dosage: 1500 INTERNATIONAL UNIT, 3X A WEEK
     Route: 042
     Dates: start: 20190109
  3. LANTUS [Concomitant]
     Active Substance: INSULIN GLARGINE
     Indication: DIABETES MELLITUS
     Dosage: UNK UNK, TID
     Route: 065
  4. ADVATE [Suspect]
     Active Substance: ANTIHEMOPHILIC FACTOR, HUMAN RECOMBINANT
     Dosage: 1500 INTERNATIONAL UNIT, 3X A WEEK
     Route: 042
     Dates: start: 20190109
  5. ADVATE [Suspect]
     Active Substance: ANTIHEMOPHILIC FACTOR, HUMAN RECOMBINANT
     Indication: FACTOR VIII DEFICIENCY
     Dosage: 1500 INTERNATIONAL UNIT, 3X A WEEK
     Route: 042
     Dates: start: 20020508
  6. ADVATE [Suspect]
     Active Substance: ANTIHEMOPHILIC FACTOR, HUMAN RECOMBINANT
     Indication: FACTOR VIII DEFICIENCY
     Dosage: 1500 INTERNATIONAL UNIT, 3X A WEEK
     Route: 042
     Dates: start: 20020508
  7. ADVATE [Suspect]
     Active Substance: ANTIHEMOPHILIC FACTOR, HUMAN RECOMBINANT
     Indication: FACTOR VIII DEFICIENCY
     Dosage: 1500 INTERNATIONAL UNIT, 3X A WEEK
     Route: 042
     Dates: start: 20020508
  8. ADVATE [Suspect]
     Active Substance: ANTIHEMOPHILIC FACTOR, HUMAN RECOMBINANT
     Dosage: 1500 INTERNATIONAL UNIT, 3X A WEEK
     Route: 042
     Dates: start: 20190109
  9. NOVOMIX [Concomitant]
     Active Substance: INSULIN ASPART
     Indication: DIABETES MELLITUS
     Dosage: UNK UNK, TID
     Route: 065

REACTIONS (8)
  - Haemarthrosis [Recovering/Resolving]
  - Overweight [Recovering/Resolving]
  - Inappropriate schedule of product administration [Recovered/Resolved]
  - Gait disturbance [Unknown]
  - Joint swelling [Recovered/Resolved]
  - Seizure [Recovering/Resolving]
  - Contusion [Recovering/Resolving]
  - Product distribution issue [Recovered/Resolved]

NARRATIVE: CASE EVENT DATE: 202103
